FAERS Safety Report 23077221 (Version 1)
Quarter: 2023Q4

REPORT INFORMATION
  Report Type: Spontaneous
  Country: US (occurrence: US)
  Receive Date: 20231018
  Receipt Date: 20231018
  Transmission Date: 20240110
  Serious: Yes (Hospitalization)
  Sender: FDA-Public Use
  Company Number: US-AMGEN-USASP2023182024

PATIENT
  Age: 82 Year
  Sex: Male

DRUGS (2)
  1. ADALIMUMAB [Suspect]
     Active Substance: ADALIMUMAB\ISOPROPYL ALCOHOL
     Indication: Polychondritis
     Dosage: UNK
     Route: 065
  2. METHOTREXATE [Concomitant]
     Active Substance: METHOTREXATE
     Dosage: 15 MILLIGRAM, QWK
     Route: 058

REACTIONS (6)
  - Organising pneumonia [Recovering/Resolving]
  - White blood cell count decreased [Unknown]
  - Haemoglobin decreased [Unknown]
  - Platelet count decreased [Unknown]
  - Hypergammaglobulinaemia benign monoclonal [Unknown]
  - Off label use [Unknown]
